FAERS Safety Report 8948410 (Version 2)
Quarter: 2013Q1

REPORT INFORMATION
  Report Type: Spontaneous
  Country: US (occurrence: None)
  Receive Date: 20121126
  Receipt Date: 20130109
  Transmission Date: 20140127
  Serious: Yes (Other)
  Sender: FDA-Public Use
  Company Number: DKLU1086553

PATIENT
  Age: 53 Year
  Sex: Female

DRUGS (3)
  1. SABRIL [Suspect]
     Indication: PRODUCT USED FOR UNKNOWN INDICATION
     Dosage: MID-1990^S
  2. TEGRETOL (CARBAMAZEPINE) UNKNOWN [Concomitant]
  3. DEPAKOTE (VALPROATE SEMISODIUM) [Concomitant]

REACTIONS (1)
  - No adverse event [None]
